FAERS Safety Report 7986480-3 (Version None)
Quarter: 2011Q4

REPORT INFORMATION
  Report Type: 
  Country: None (occurrence: None)
  Receive Date: 20111216
  Receipt Date: 20110131
  Transmission Date: 20120403
  Serious: No
  Sender: FDA-Public Use
  Company Number: US-BRISTOL-MYERS SQUIBB COMPANY-15519226

PATIENT
  Age: 10 Year
  Sex: Female

DRUGS (3)
  1. ABILIFY [Suspect]
     Dates: start: 20100701
  2. ADDERALL XR 10 [Concomitant]
  3. RISPERDAL [Concomitant]
     Dates: end: 20100701

REACTIONS (1)
  - DYSKINESIA [None]
